FAERS Safety Report 12937685 (Version 1)
Quarter: 2016Q4

REPORT INFORMATION
  Report Type: Spontaneous
  Country: US (occurrence: US)
  Receive Date: 20161114
  Receipt Date: 20161114
  Transmission Date: 20170207
  Serious: No
  Sender: FDA-Public Use
  Company Number: US-MYLANLABS-2016M1024648

PATIENT
  Sex: Female

DRUGS (2)
  1. MECLIZINE [Suspect]
     Active Substance: MECLIZINE HYDROCHLORIDE
     Indication: VERTIGO
     Dosage: 25 MG, PRN
     Route: 065
  2. MECLIZINE [Suspect]
     Active Substance: MECLIZINE HYDROCHLORIDE
     Indication: DIZZINESS
     Dosage: 25 MG, PRN
     Dates: start: 2016, end: 2016

REACTIONS (3)
  - Drug ineffective [Recovering/Resolving]
  - Feeling abnormal [Unknown]
  - Somnolence [Recovered/Resolved]
